FAERS Safety Report 9270874 (Version 2)
Quarter: 2013Q4

REPORT INFORMATION
  Report Type: Spontaneous
  Country: US (occurrence: US)
  Receive Date: 20130503
  Receipt Date: 20131004
  Transmission Date: 20140711
  Serious: Yes (Hospitalization)
  Sender: FDA-Public Use
  Company Number: US-B.I. PHARMACEUTICALS,INC./RIDGEFIELD-2013-BI-12221BP

PATIENT
  Age: 83 Year
  Sex: Male
  Weight: 96.16 kg

DRUGS (13)
  1. PRADAXA [Suspect]
     Indication: ANTICOAGULANT THERAPY
     Dosage: 300 MG
     Route: 048
     Dates: start: 20110516, end: 20110803
  2. PRADAXA [Suspect]
     Indication: CEREBROVASCULAR ACCIDENT PROPHYLAXIS
  3. PRADAXA [Suspect]
     Indication: ATRIAL FIBRILLATION
  4. ASPIRIN [Concomitant]
     Dosage: 81 MG
     Route: 048
  5. FUROSEMIDE [Concomitant]
     Dosage: 20 MG
     Route: 048
  6. METFORMIN HCL [Concomitant]
     Dosage: 2000 MG
     Route: 048
  7. POTASSIUM CHLORIDE [Concomitant]
     Dosage: 20 MEQ
     Route: 048
  8. SIMVASTATIN [Concomitant]
     Indication: HYPERCHOLESTEROLAEMIA
     Dosage: 20 MG
     Route: 048
  9. VARDENAFIL HCL [Concomitant]
     Dosage: 20 MG
     Route: 048
  10. CARVEDILOL [Concomitant]
     Dosage: 12.5 MG
     Route: 048
  11. CITALOPRAM HYDROBROMIDE [Concomitant]
     Dosage: 10 MG
     Route: 048
  12. DRONEDARONE [Concomitant]
     Route: 048
  13. LISINOPRIL [Concomitant]
     Dosage: 5 MG
     Route: 048

REACTIONS (3)
  - Gastrointestinal haemorrhage [Recovered/Resolved]
  - Anaemia [Unknown]
  - Coagulopathy [Unknown]
